FAERS Safety Report 7530032-6 (Version None)
Quarter: 2011Q2

REPORT INFORMATION
  Report Type: 
  Country: None (occurrence: None)
  Receive Date: 20110607
  Receipt Date: 20110525
  Transmission Date: 20111010
  Serious: Yes (Other)
  Sender: FDA-Public Use
  Company Number: PHHY2011CA46438

PATIENT
  Age: 4 Month
  Sex: Male

DRUGS (5)
  1. STEROIDS NOS [Concomitant]
  2. ANTI-THYMOCYTE GLOBULIN NOS [Concomitant]
  3. BUSULFAN [Concomitant]
  4. CYCLOPHOSPHAMIDE [Concomitant]
  5. CYCLOSPORINE [Suspect]
     Indication: PROPHYLAXIS AGAINST GRAFT VERSUS HOST DISEASE
     Dosage: UNK

REACTIONS (4)
  - PNEUMONIA ASPIRATION [None]
  - DYSPHAGIA [None]
  - MOTOR DEVELOPMENTAL DELAY [None]
  - HYPOTONIA [None]
